FAERS Safety Report 23169667 (Version 1)
Quarter: 2023Q4

REPORT INFORMATION
  Report Type: Spontaneous
  Country: US (occurrence: US)
  Receive Date: 20231110
  Receipt Date: 20231110
  Transmission Date: 20240110
  Serious: No
  Sender: FDA-Public Use
  Company Number: US-TEVA-2023-US-2939754

PATIENT
  Age: 34 Year
  Sex: Female

DRUGS (1)
  1. ETHINYL ESTRADIOL\ETONOGESTREL [Suspect]
     Active Substance: ETHINYL ESTRADIOL\ETONOGESTREL
     Indication: Product used for unknown indication
     Dosage: 0.120/0.015 MG-MG
     Route: 067
     Dates: start: 202112

REACTIONS (9)
  - Coccydynia [Unknown]
  - Back pain [Unknown]
  - Adnexa uteri pain [Unknown]
  - Uterine pain [Unknown]
  - Vulvovaginal pain [Unknown]
  - Pelvic pain [Unknown]
  - Nausea [Unknown]
  - Device difficult to use [Unknown]
  - Device issue [Unknown]
